FAERS Safety Report 11735075 (Version 1)
Quarter: 2015Q4

REPORT INFORMATION
  Report Type: Report from Study
  Country: KR (occurrence: KR)
  Receive Date: 20151113
  Receipt Date: 20151113
  Transmission Date: 20160304
  Serious: Yes (Death, Other)
  Sender: FDA-Public Use
  Company Number: KR-GLAXOSMITHKLINE-KR2015GSK155655

PATIENT
  Age: 10 Year
  Sex: Female

DRUGS (4)
  1. CARBOPLATIN. [Suspect]
     Active Substance: CARBOPLATIN
     Indication: OSTEOSARCOMA
     Dosage: 400 MG/M2
  2. ETOPOSIDE. [Suspect]
     Active Substance: ETOPOSIDE
     Indication: OSTEOSARCOMA
     Dosage: 200 MG/M2
  3. MELPHALAN [Suspect]
     Active Substance: MELPHALAN
     Indication: OSTEOSARCOMA
     Dosage: 140MG/M2 ON DAY -7
  4. MELPHALAN [Suspect]
     Active Substance: MELPHALAN
     Dosage: 70MG/M2 ON -6

REACTIONS (3)
  - Venoocclusive disease [Recovered/Resolved]
  - Off label use [Unknown]
  - Cardiac arrest [Fatal]
